FAERS Safety Report 14686648 (Version 1)
Quarter: 2018Q1

REPORT INFORMATION
  Report Type: Spontaneous
  Country: AT (occurrence: AT)
  Receive Date: 20180327
  Receipt Date: 20180327
  Transmission Date: 20180509
  Serious: Yes (Other)
  Sender: FDA-Public Use
  Company Number: AT-GEHC-OSCN-NO-0804S-0228

PATIENT

DRUGS (5)
  1. OMNISCAN [Suspect]
     Active Substance: GADODIAMIDE
     Indication: PRODUCT USED FOR UNKNOWN INDICATION
     Dosage: 10 ML, SINGLE
     Route: 042
     Dates: start: 19980422, end: 19980422
  2. MAGNEVIST [Suspect]
     Active Substance: GADOPENTETATE DIMEGLUMINE
     Indication: PRODUCT USED FOR UNKNOWN INDICATION
     Dosage: 12 ML, SINGLE
     Dates: start: 20020922, end: 20020922
  3. DOTAREM [Suspect]
     Active Substance: GADOTERATE MEGLUMINE
     Dosage: 32 ML, SINGLE
     Dates: start: 20040319, end: 20040319
  4. DOTAREM [Suspect]
     Active Substance: GADOTERATE MEGLUMINE
     Indication: PRODUCT USED FOR UNKNOWN INDICATION
     Dosage: 10 ML, SINGLE
     Dates: start: 20030612, end: 20030612
  5. DOTAREM [Suspect]
     Active Substance: GADOTERATE MEGLUMINE
     Dosage: 47 ML, SINGLE
     Dates: start: 20030904, end: 20030904

REACTIONS (1)
  - Nephrogenic systemic fibrosis [Not Recovered/Not Resolved]

NARRATIVE: CASE EVENT DATE: 20040607
